FAERS Safety Report 12811699 (Version 2)
Quarter: 2017Q4

REPORT INFORMATION
  Report Type: Spontaneous
  Country: US (occurrence: US)
  Receive Date: 20161005
  Receipt Date: 20171018
  Transmission Date: 20180320
  Serious: No
  Sender: FDA-Public Use
  Company Number: US-AMGEN-USASP2016117613

PATIENT

DRUGS (2)
  1. PROLIA [Suspect]
     Active Substance: DENOSUMAB
     Indication: PRODUCT USED FOR UNKNOWN INDICATION
     Dosage: UNK
     Route: 065
  2. CALCIUM [Concomitant]
     Active Substance: CALCIUM

REACTIONS (15)
  - Muscle spasms [Unknown]
  - Blood blister [Unknown]
  - Confusional state [Unknown]
  - Gait disturbance [Unknown]
  - Gingival disorder [Unknown]
  - Temperature intolerance [Unknown]
  - Gingival swelling [Unknown]
  - Fatigue [Unknown]
  - Nausea [Unknown]
  - Breast swelling [Unknown]
  - Palpitations [Unknown]
  - Insomnia [Unknown]
  - Middle ear effusion [Unknown]
  - Pain [Unknown]
  - Abdominal pain upper [Unknown]
